FAERS Safety Report 18221323 (Version 1)
Quarter: 2020Q3

REPORT INFORMATION
  Report Type: Spontaneous
  Country: US (occurrence: US)
  Receive Date: 20200902
  Receipt Date: 20200902
  Transmission Date: 20201103
  Serious: No
  Sender: FDA-Public Use
  Company Number: US-TEVA-2020-US-1812226

PATIENT
  Sex: Female

DRUGS (5)
  1. FIBER 625 MG TABLET [Concomitant]
  2. ASPIRIN 325MG [Concomitant]
     Active Substance: ASPIRIN
  3. PROBIOTIC 10B CELL CAPSULE [Concomitant]
  4. AUSTEDO [Suspect]
     Active Substance: DEUTETRABENAZINE
     Dosage: 12 MILLIGRAM DAILY;
     Route: 065
     Dates: start: 20200801
  5. CALCIUM 500(1250) TABLET [Concomitant]

REACTIONS (2)
  - Fatigue [Unknown]
  - Limb discomfort [Unknown]
